FAERS Safety Report 20231751 (Version 1)
Quarter: 2021Q4

REPORT INFORMATION
  Report Type: Spontaneous
  Country: US (occurrence: None)
  Receive Date: 20211223
  Receipt Date: 20211223
  Transmission Date: 20220303
  Serious: Yes (Death)
  Sender: FDA-Public Use
  Company Number: None

PATIENT
  Age: 74 Year
  Sex: Female

DRUGS (1)
  1. ANAGRELIDE [Suspect]
     Active Substance: ANAGRELIDE
     Indication: Platelet count increased
     Dates: start: 20210401, end: 20210927

REACTIONS (2)
  - Pulmonary oedema [None]
  - Drug interaction [None]

NARRATIVE: CASE EVENT DATE: 20210601
